FAERS Safety Report 8853724 (Version 4)
Quarter: 2013Q2

REPORT INFORMATION
  Report Type: Report from Study
  Country: JP (occurrence: JP)
  Receive Date: 20121022
  Receipt Date: 20130606
  Transmission Date: 20140414
  Serious: Yes (Hospitalization, Other)
  Sender: FDA-Public Use
  Company Number: JP-009507513-2012SP036971

PATIENT
  Age: 51 Year
  Sex: Male
  Weight: 66 kg

DRUGS (13)
  1. PEGINTRON [Suspect]
     Indication: CHRONIC HEPATITIS C
     Dosage: 1.5 MICROGRAM PER KILOGRAM, QW
     Route: 058
     Dates: start: 20120426, end: 20121011
  2. REBETOL [Suspect]
     Indication: CHRONIC HEPATITIS C
     Dosage: 800 MG, QD
     Route: 048
     Dates: start: 20120426, end: 20120516
  3. REBETOL [Suspect]
     Dosage: 600 MG, QD
     Route: 048
     Dates: start: 20120517, end: 20120620
  4. REBETOL [Suspect]
     Dosage: 800 MG, QD
     Route: 048
     Dates: start: 20120621, end: 20120704
  5. REBETOL [Suspect]
     Dosage: 600 MG, QD
     Route: 048
     Dates: start: 20120705, end: 20121011
  6. TELAVIC [Suspect]
     Indication: CHRONIC HEPATITIS C
     Dosage: 2250 MG, QD
     Route: 048
     Dates: start: 20120426, end: 20120508
  7. GASPORT D [Concomitant]
     Indication: PROPHYLAXIS
     Dosage: TRADE NAME: GASPORT-D
     Route: 048
     Dates: start: 20120426
  8. ALLEGRA [Concomitant]
     Indication: RASH
     Dosage: 2 DF, QD
     Route: 048
     Dates: start: 20120502
  9. ALLEGRA [Concomitant]
     Indication: PROPHYLAXIS
  10. DERMOVATE [Concomitant]
     Indication: RASH
     Dosage: PROPER DOSE/DAY
     Route: 061
     Dates: start: 20120508, end: 20120517
  11. LENDORMIN [Concomitant]
     Indication: INSOMNIA
     Dosage: DOSE-1 TAB PER DAY,AS NEEDED
     Route: 048
     Dates: start: 20120509
  12. LENDORMIN [Concomitant]
     Dosage: 1 DF, QD
  13. ANTEBATE [Concomitant]
     Indication: RASH
     Dosage: DOSE-AS NEEDED
     Route: 061
     Dates: start: 20120502, end: 20120507

REACTIONS (2)
  - Rash [Recovered/Resolved]
  - White blood cell count decreased [Not Recovered/Not Resolved]
